FAERS Safety Report 12920366 (Version 1)
Quarter: 2016Q4

REPORT INFORMATION
  Report Type: Spontaneous
  Country: US (occurrence: US)
  Receive Date: 20161104
  Receipt Date: 20161104
  Transmission Date: 20170207
  Serious: No
  Sender: FDA-Public Use
  Company Number: None

PATIENT
  Age: 24 Year
  Sex: Male

DRUGS (3)
  1. NEORAL [Suspect]
     Active Substance: CYCLOSPORINE
     Indication: DERMATITIS
  2. NEORAL [Suspect]
     Active Substance: CYCLOSPORINE
     Indication: DERMATITIS CONTACT
  3. NEORAL [Suspect]
     Active Substance: CYCLOSPORINE
     Indication: DERMATITIS ATOPIC

REACTIONS (1)
  - Cellulitis [None]

NARRATIVE: CASE EVENT DATE: 20161024
